FAERS Safety Report 9318006 (Version 1)
Quarter: 2013Q2

REPORT INFORMATION
  Report Type: Spontaneous
  Country: BE (occurrence: BE)
  Receive Date: 20130530
  Receipt Date: 20130530
  Transmission Date: 20140414
  Serious: Yes (Other)
  Sender: FDA-Public Use
  Company Number: BE-BRISTOL-MYERS SQUIBB COMPANY-18958603

PATIENT
  Age: 2 Decade
  Sex: Male

DRUGS (2)
  1. ABILIFY TABS [Suspect]
     Indication: SCHIZOPHRENIA, PARANOID TYPE
     Dosage: APR13 TO 14MAY13: 15MG?14MAY13 TO ONG:30MG
     Route: 048
     Dates: start: 201304
  2. RISPERDAL [Suspect]
     Indication: SCHIZOPHRENIA, PARANOID TYPE
     Route: 030
     Dates: start: 2008

REACTIONS (1)
  - Psychotic disorder [Unknown]
